FAERS Safety Report 15007358 (Version 1)
Quarter: 2018Q2

REPORT INFORMATION
  Report Type: Spontaneous
  Country: ZA (occurrence: ZA)
  Receive Date: 20180613
  Receipt Date: 20180613
  Transmission Date: 20180711
  Serious: Yes (Hospitalization)
  Sender: FDA-Public Use
  Company Number: PHHY2018ZA020883

PATIENT
  Sex: Female

DRUGS (1)
  1. HEXARONE [Suspect]
     Active Substance: AMIODARONE
     Indication: CARDIAC DISORDER
     Dosage: 100 MG, UNK
     Route: 048

REACTIONS (1)
  - Gastrointestinal disorder [Recovering/Resolving]
